FAERS Safety Report 5072581-9 (Version None)
Quarter: 2006Q3

REPORT INFORMATION
  Report Type: 
  Country: None (occurrence: None)
  Receive Date: 20060807
  Receipt Date: 20050606
  Transmission Date: 20061208
  Serious: Yes (Other)
  Sender: FDA-Public Use
  Company Number: US-ROCHE-406945

PATIENT
  Age: 13 Year
  Sex: Male
  Weight: 72.6 kg

DRUGS (1)
  1. ACCUTANE [Suspect]
     Indication: ACNE
     Route: 048
     Dates: start: 19990415, end: 19990417

REACTIONS (12)
  - ALCOHOLIC PSYCHOSIS [None]
  - ALCOHOLISM [None]
  - ANKLE FRACTURE [None]
  - DEPRESSION [None]
  - DRUG ABUSER [None]
  - GASTROOESOPHAGEAL REFLUX DISEASE [None]
  - JOINT DISLOCATION [None]
  - SCHIZOPHRENIA [None]
  - SUICIDAL IDEATION [None]
  - SUICIDE ATTEMPT [None]
  - TOOTH FRACTURE [None]
  - WOUND [None]
